FAERS Safety Report 24232005 (Version 3)
Quarter: 2025Q3

REPORT INFORMATION
  Report Type: Spontaneous
  Country: EU (occurrence: EU)
  Receive Date: 20240821
  Receipt Date: 20250929
  Transmission Date: 20251021
  Serious: Yes (Death, Hospitalization, Other)
  Sender: AUROBINDO
  Company Number: EU-AUROBINDO-AUR-APL-2020-054291

PATIENT
  Age: 3 Year
  Sex: Male

DRUGS (3)
  1. PREDNISOLONE [Suspect]
     Active Substance: PREDNISOLONE
     Indication: Chronic graft versus host disease
     Route: 065
  2. CYCLOSPORINE [Suspect]
     Active Substance: CYCLOSPORINE
     Indication: Product used for unknown indication
     Route: 065
  3. OXYGEN [Suspect]
     Active Substance: OXYGEN
     Indication: Product used for unknown indication
     Route: 065

REACTIONS (10)
  - Chronic graft versus host disease [Fatal]
  - Febrile neutropenia [Unknown]
  - Epstein-Barr virus associated lymphoproliferative disorder [Recovering/Resolving]
  - Post transplant lymphoproliferative disorder [Recovering/Resolving]
  - Pneumomediastinum [Recovered/Resolved]
  - Dyspnoea [Unknown]
  - Tachypnoea [Unknown]
  - Subcutaneous emphysema [Recovering/Resolving]
  - Mediastinal mass [Recovered/Resolved]
  - Epstein-Barr virus infection [Recovered/Resolved]
